FAERS Safety Report 19990587 (Version 3)
Quarter: 2022Q1

REPORT INFORMATION
  Report Type: Report from Study
  Country: BR (occurrence: BR)
  Receive Date: 20211025
  Receipt Date: 20220103
  Transmission Date: 20220423
  Serious: Yes (Other)
  Sender: FDA-Public Use
  Company Number: BR-BIOGEN-2021BI01060620

PATIENT
  Sex: Female

DRUGS (9)
  1. AVONEX PEN [Suspect]
     Active Substance: INTERFERON BETA-1A
     Indication: Multiple sclerosis
     Route: 030
     Dates: start: 2016, end: 2017
  2. AVONEX PEN [Suspect]
     Active Substance: INTERFERON BETA-1A
  3. AVONEX PEN [Suspect]
     Active Substance: INTERFERON BETA-1A
  4. AVONEX PEN [Suspect]
     Active Substance: INTERFERON BETA-1A
  5. VITAMIN D [Concomitant]
     Active Substance: VITAMIN D NOS
     Indication: Product used for unknown indication
     Route: 065
  6. PREGABALIN [Concomitant]
     Active Substance: PREGABALIN
     Indication: Muscle spasms
     Route: 048
  7. PREGABALIN [Concomitant]
     Active Substance: PREGABALIN
     Route: 065
     Dates: start: 2016
  8. Oxalate of escitalopram [Concomitant]
     Indication: Anxiety
     Route: 048
     Dates: start: 20160101
  9. Oxalate of escitalopram [Concomitant]
     Route: 048
     Dates: start: 2016

REACTIONS (2)
  - Central nervous system lesion [Unknown]
  - Multiple sclerosis [Unknown]

NARRATIVE: CASE EVENT DATE: 20160101
